FAERS Safety Report 8697986 (Version 4)
Quarter: 2012Q4

REPORT INFORMATION
  Report Type: 
  Country: US (occurrence: US)
  Receive Date: 20120801
  Receipt Date: 20121210
  Transmission Date: 20130627
  Serious: Yes (Hospitalization)
  Sender: FDA-Public Use
  Company Number: US-009507513-2012SP035044

PATIENT
  Sex: Female
  Weight: 82.99 kg

DRUGS (1)
  1. IMPLANON [Suspect]
     Indication: CONTRACEPTION
     Dosage: UNK DF, UNK
     Route: 059
     Dates: start: 20100421

REACTIONS (2)
  - Unintended pregnancy [Unknown]
  - Device difficult to use [Unknown]
